FAERS Safety Report 9068859 (Version 1)
Quarter: 2013Q1

REPORT INFORMATION
  Report Type: Spontaneous
  Country: IT (occurrence: IT)
  Receive Date: 20130215
  Receipt Date: 20130215
  Transmission Date: 20140127
  Serious: Yes (Life-Threatening)
  Sender: FDA-Public Use
  Company Number: IT-PFIZER INC-2013057139

PATIENT
  Age: 21 Year
  Sex: Female

DRUGS (4)
  1. XANAX [Suspect]
     Dosage: 0.5 MG, SINGLE
     Route: 048
     Dates: start: 20130107, end: 20130107
  2. PAROXETINE [Suspect]
     Dosage: 30 DF, SINGLE
     Route: 048
     Dates: start: 20130107, end: 20130107
  3. TINSET [Suspect]
     Dosage: 1 DF, SINGLE
     Route: 048
     Dates: start: 20130107, end: 20130107
  4. KCL [Suspect]
     Dosage: 20 DF, SINGLE
     Route: 048
     Dates: start: 20130107, end: 20130107

REACTIONS (4)
  - Confusional state [Recovering/Resolving]
  - Restlessness [Recovering/Resolving]
  - Pallor [Recovering/Resolving]
  - Drug abuse [Recovering/Resolving]
